FAERS Safety Report 5837800-7 (Version None)
Quarter: 2008Q3

REPORT INFORMATION
  Report Type: 
  Country: None (occurrence: None)
  Receive Date: 20080807
  Receipt Date: 20080729
  Transmission Date: 20090109
  Serious: Yes (Hospitalization)
  Sender: FDA-Public Use
  Company Number: DE-ABBOTT-08P-062-0468044-00

PATIENT
  Age: 3 Decade
  Sex: Male
  Weight: 65 kg

DRUGS (4)
  1. HUMIRA [Suspect]
     Indication: DRUG USE FOR UNKNOWN INDICATION
     Route: 058
     Dates: start: 20070101, end: 20080601
  2. INDOMETHACIN [Concomitant]
     Indication: ANKYLOSING SPONDYLITIS
     Dates: start: 20080605, end: 20080616
  3. INDOMETHACIN [Concomitant]
  4. GLUCOCORTICOIDS [Concomitant]
     Indication: ANKYLOSING SPONDYLITIS

REACTIONS (5)
  - ARTHRALGIA [None]
  - ASTHENIA [None]
  - LUPUS-LIKE SYNDROME [None]
  - NIGHT SWEATS [None]
  - SKIN TURGOR DECREASED [None]
